FAERS Safety Report 18149991 (Version 1)
Quarter: 2020Q3

REPORT INFORMATION
  Report Type: Spontaneous
  Country: RU (occurrence: RU)
  Receive Date: 20200814
  Receipt Date: 20200814
  Transmission Date: 20201103
  Serious: Yes (Other)
  Sender: FDA-Public Use
  Company Number: RU-ROCHE-2657412

PATIENT
  Age: 32 Year
  Sex: Female

DRUGS (7)
  1. DOCETAXEL. [Suspect]
     Active Substance: DOCETAXEL
     Indication: BREAST CANCER
     Dosage: DOCETAXEL 75MG / M2 IV ON THE 1ST DAY
     Route: 042
     Dates: start: 20171219
  2. DOCETAXEL. [Suspect]
     Active Substance: DOCETAXEL
     Route: 042
     Dates: start: 20171220
  3. TRASTUZUMAB. [Suspect]
     Active Substance: TRASTUZUMAB
     Indication: BREAST CANCER
     Dosage: TRASTUZUMAB 6MG / KG (LOADING DOSE 8MG / KG) IV ON THE 1ST DAY. ONCE EVERY 3 WEEKS ? 6 CYCLES TRASTU
     Route: 041
     Dates: start: 20171219
  4. DENOSUMAB [Concomitant]
     Active Substance: DENOSUMAB
  5. CARBOPLATINE [Suspect]
     Active Substance: CARBOPLATIN
     Indication: BREAST CANCER
     Dosage: CARBOPLATIN AUC?6 IV ON THE 1ST DAY
     Route: 042
     Dates: start: 20171219
  6. TRASTUZUMAB EMTANSINE [Suspect]
     Active Substance: ADO-TRASTUZUMAB EMTANSINE
     Indication: BREAST CANCER
     Route: 042
     Dates: start: 201902
  7. CARBOPLATINE [Suspect]
     Active Substance: CARBOPLATIN
     Route: 042
     Dates: start: 20171220

REACTIONS (3)
  - Hepatotoxicity [Unknown]
  - Disease progression [Not Recovered/Not Resolved]
  - Anaemia [Unknown]
